FAERS Safety Report 22225220 (Version 1)
Quarter: 2023Q2

REPORT INFORMATION
  Report Type: Spontaneous
  Country: CA (occurrence: CA)
  Receive Date: 20230418
  Receipt Date: 20230418
  Transmission Date: 20230722
  Serious: Yes (Other)
  Sender: FDA-Public Use
  Company Number: CA-002147023-NVSC2022CA293153

PATIENT
  Sex: Male

DRUGS (1)
  1. OMALIZUMAB [Suspect]
     Active Substance: OMALIZUMAB
     Indication: Systemic mastocytosis
     Route: 065
     Dates: start: 20200619

REACTIONS (3)
  - Mastocytosis [Unknown]
  - Disease progression [Unknown]
  - Off label use [Unknown]
